FAERS Safety Report 6108588-X (Version None)
Quarter: 2009Q1

REPORT INFORMATION
  Report Type: 
  Country: None (occurrence: None)
  Receive Date: 20090305
  Receipt Date: 20090220
  Transmission Date: 20090719
  Serious: Yes (Other)
  Sender: FDA-Public Use
  Company Number: 1000004985

PATIENT
  Sex: Female

DRUGS (5)
  1. ESCITALOPRAM [Suspect]
     Indication: DEPRESSION
     Dosage: 5 MG (5 MG, 1 IN 1 D),ORAL ; 10 MG (10 MG, 1 IN 1 D),ORAL;  15 MG (15 MA, 1 IN 1 D),ORAL
     Route: 048
  2. ESCITALOPRAM [Suspect]
     Indication: DEPRESSION
     Dosage: 20 MG (20 MG, 1 IN 1 D), ORAL
     Route: 048
  3. ESCITALOPRAM [Suspect]
     Indication: DEPRESSION
     Dosage: 5 MG (5 MG, 1 IN 1 D),ORAL;  10 MG (10 MG, 1 IN 1 D),ORAL
  4. ESCITALOPRAM [Suspect]
     Indication: DEPRESSION
     Dosage: 15 MG (15 MG, 1 IN 1 D),ORAL
     Route: 048
  5. ESCITALOPRAM [Suspect]
     Indication: DEPRESSION
     Dosage: 5 MG (5 MG, 1 IN 1 D),ORAL

REACTIONS (3)
  - IRRITABILITY [None]
  - PERSONALITY CHANGE [None]
  - SUICIDAL IDEATION [None]
